FAERS Safety Report 19861738 (Version 2)
Quarter: 2021Q3

REPORT INFORMATION
  Report Type: Report from Study
  Country: CA (occurrence: CA)
  Receive Date: 20210920
  Receipt Date: 20210930
  Transmission Date: 20211014
  Serious: Yes (Other)
  Sender: FDA-Public Use
  Company Number: CA-TAKEDA-2021TUS057319

PATIENT
  Age: 67 Year
  Sex: Female

DRUGS (10)
  1. METRONIDAZOLE. [Concomitant]
     Active Substance: METRONIDAZOLE
     Indication: GASTROINTESTINAL BACTERIAL OVERGROWTH
     Dosage: 250 MILLIGRAM, PRN
     Route: 065
  2. TEDUGLUTIDE [Suspect]
     Active Substance: TEDUGLUTIDE
     Indication: SHORT-BOWEL SYNDROME
     Dosage: 0.050 MILLIGRAM/KILOGRAM
     Route: 065
     Dates: start: 20200304
  3. TETRACYCLINE [Concomitant]
     Active Substance: TETRACYCLINE
     Indication: GASTROINTESTINAL BACTERIAL OVERGROWTH
     Dosage: 250 MILLIGRAM, QID
     Route: 048
     Dates: start: 20210701, end: 20210715
  4. CENTRUM WOMEN 50+ [Concomitant]
     Active Substance: VITAMINS
     Indication: MALABSORPTION
  5. TEDUGLUTIDE [Suspect]
     Active Substance: TEDUGLUTIDE
     Indication: SHORT-BOWEL SYNDROME
     Dosage: 0.050 MILLIGRAM/KILOGRAM
     Route: 065
     Dates: start: 20200304
  6. TEDUGLUTIDE [Suspect]
     Active Substance: TEDUGLUTIDE
     Indication: SHORT-BOWEL SYNDROME
     Dosage: 0.050 MILLIGRAM/KILOGRAM
     Route: 065
     Dates: start: 20200304
  7. CENTRUM WOMEN 50+ [Concomitant]
     Active Substance: VITAMINS
     Indication: HYPOVITAMINOSIS
     Dosage: UNK UNK, QD
     Route: 048
  8. PANTOLOC [Concomitant]
     Active Substance: PANTOPRAZOLE SODIUM
     Indication: GASTROOESOPHAGEAL REFLUX DISEASE
     Dosage: 40 MILLIGRAM, QD
     Route: 048
     Dates: start: 20210824
  9. TEDUGLUTIDE [Suspect]
     Active Substance: TEDUGLUTIDE
     Indication: SHORT-BOWEL SYNDROME
     Dosage: 0.050 MILLIGRAM/KILOGRAM
     Route: 065
     Dates: start: 20200304
  10. CENTRUM WOMEN 50+ [Concomitant]
     Active Substance: VITAMINS
     Indication: SHORT-BOWEL SYNDROME

REACTIONS (1)
  - Biliary dilatation [Not Recovered/Not Resolved]

NARRATIVE: CASE EVENT DATE: 20210320
